FAERS Safety Report 10770441 (Version 2)
Quarter: 2015Q1

REPORT INFORMATION
  Report Type: Spontaneous
  Country: US (occurrence: US)
  Receive Date: 20150206
  Receipt Date: 20150310
  Transmission Date: 20150721
  Serious: Yes (Other)
  Sender: FDA-Public Use
  Company Number: US-ELI_LILLY_AND_COMPANY-US201501009575

PATIENT
  Age: 21 Year
  Sex: Male
  Weight: 98.5 kg

DRUGS (3)
  1. HUMALOG [Suspect]
     Active Substance: INSULIN LISPRO
     Dosage: 95 U, QD
     Route: 058
     Dates: start: 20140411, end: 20150212
  2. HUMALOG [Suspect]
     Active Substance: INSULIN LISPRO
     Indication: TYPE 1 DIABETES MELLITUS
     Dosage: UNK
     Route: 058
     Dates: start: 201401
  3. XANAX [Concomitant]
     Active Substance: ALPRAZOLAM

REACTIONS (8)
  - Hyperglycaemic unconsciousness [Recovered/Resolved]
  - Fall [Recovered/Resolved]
  - Nasopharyngitis [Unknown]
  - Drug ineffective [Recovered/Resolved]
  - Blood glucose increased [Unknown]
  - Blood glucose increased [Recovered/Resolved]
  - Glycosylated haemoglobin increased [Unknown]
  - Head injury [Recovered/Resolved]

NARRATIVE: CASE EVENT DATE: 20140827
